FAERS Safety Report 7971372-6 (Version None)
Quarter: 2011Q4

REPORT INFORMATION
  Report Type: 
  Country: None (occurrence: None)
  Receive Date: 20111212
  Receipt Date: 20111208
  Transmission Date: 20120403
  Serious: Yes (Hospitalization, Disabling, Other)
  Sender: FDA-Public Use
  Company Number: US-MERCK-1012USA03786

PATIENT
  Age: 58 Year
  Sex: Female
  Weight: 63 kg

DRUGS (6)
  1. FOSAMAX [Suspect]
     Indication: OSTEOPOROSIS PROPHYLAXIS
     Route: 048
     Dates: start: 19990501, end: 20020801
  2. FOSAMAX [Suspect]
     Route: 048
     Dates: start: 20020801, end: 20090311
  3. VITAMINS (UNSPECIFIED) [Concomitant]
     Route: 065
     Dates: start: 19650101
  4. VITAMIN E [Concomitant]
     Route: 065
     Dates: start: 19850101, end: 20090101
  5. CALCIUM (UNSPECIFIED) [Concomitant]
     Route: 065
     Dates: start: 19990101
  6. VITAMIN D (UNSPECIFIED) [Concomitant]
     Route: 065
     Dates: start: 19990101

REACTIONS (38)
  - FRACTURE DELAYED UNION [None]
  - CATARACT [None]
  - ANAEMIA [None]
  - LUMBAR SPINAL STENOSIS [None]
  - ILIOTIBIAL BAND SYNDROME [None]
  - VITAMIN D DEFICIENCY [None]
  - RIB FRACTURE [None]
  - ONYCHOMYCOSIS [None]
  - SPINAL OSTEOARTHRITIS [None]
  - SPONDYLOLISTHESIS [None]
  - ANTINUCLEAR ANTIBODY POSITIVE [None]
  - EMPHYSEMA [None]
  - MELANOCYTIC NAEVUS [None]
  - HEADACHE [None]
  - CARPAL TUNNEL SYNDROME [None]
  - FALL [None]
  - OSTEOARTHRITIS [None]
  - LOW TURNOVER OSTEOPATHY [None]
  - HYPERTENSION [None]
  - GASTROOESOPHAGEAL REFLUX DISEASE [None]
  - BURSITIS [None]
  - SLEEP APNOEA SYNDROME [None]
  - SEASONAL ALLERGY [None]
  - RESTLESS LEGS SYNDROME [None]
  - NECK PAIN [None]
  - PAIN [None]
  - MYOCARDIAL ISCHAEMIA [None]
  - FEMUR FRACTURE [None]
  - CONNECTIVE TISSUE DISORDER [None]
  - RASH [None]
  - TREATMENT FAILURE [None]
  - STRESS FRACTURE [None]
  - EYELID PTOSIS [None]
  - CHEST PAIN [None]
  - BLEPHARITIS [None]
  - BLADDER DISORDER [None]
  - SPINAL FRACTURE [None]
  - CALCIUM DEFICIENCY [None]
